FAERS Safety Report 5827238-0 (Version None)
Quarter: 2008Q3

REPORT INFORMATION
  Report Type: 
  Country: None (occurrence: None)
  Receive Date: 20080725
  Receipt Date: 20080717
  Transmission Date: 20090109
  Serious: Yes (Hospitalization)
  Sender: FDA-Public Use
  Company Number: GXKR2008GB06710

PATIENT
  Age: 80 Year
  Sex: Female

DRUGS (6)
  1. AMITRIPTYLINE HCL [Suspect]
     Indication: DEPRESSION
     Dosage: 50 MG,
  2. PRAVASTATIN          (RAVASTATIN SODIUM) UNKNOWN [Suspect]
     Indication: HYPERCHOLESTEROLAEMIA
     Dosage: 20 MG,
  3. ASPIRIN [Concomitant]
  4. LEVOTHYROXINE SODIUM [Concomitant]
  5. ATENOLOL [Concomitant]
  6. ARTHOETEC  (DICLOFENAC SODIUM, MISOPROSTOL) [Concomitant]

REACTIONS (9)
  - ANAEMIA [None]
  - ANOREXIA [None]
  - COLITIS [None]
  - DRUG INTERACTION [None]
  - LARGE INTESTINAL ULCER [None]
  - PSEUDOPOLYPOSIS [None]
  - PULMONARY EMBOLISM [None]
  - SCAR [None]
  - WEIGHT DECREASED [None]
